FAERS Safety Report 9070173 (Version 1)
Quarter: 2013Q1

REPORT INFORMATION
  Report Type: Spontaneous
  Country: ES (occurrence: ES)
  Receive Date: 20130129
  Receipt Date: 20130129
  Transmission Date: 20140127
  Serious: Yes (Hospitalization)
  Sender: FDA-Public Use
  Company Number: ES-B.I. PHARMACEUTICALS,INC./RIDGEFIELD-2013-BI-01914GD

PATIENT
  Age: 29 Year
  Sex: Female

DRUGS (3)
  1. NEVIRAPINE [Suspect]
     Indication: HIV INFECTION
     Dosage: 400 MG
     Route: 048
  2. EMTRICITABINE W/TENOFOVIR [Suspect]
     Indication: HIV INFECTION
     Dosage: EMTRICITABINE/TENOFOVIR 245/200 MG
     Route: 048
  3. COTRIMOXAZOLE [Concomitant]
     Dosage: 800/160 MG

REACTIONS (6)
  - Mycobacterial infection [Recovered/Resolved]
  - Respiratory tract infection bacterial [Recovered/Resolved]
  - Immune reconstitution inflammatory syndrome [Unknown]
  - Pyrexia [Unknown]
  - Productive cough [Unknown]
  - Malaise [Unknown]
